FAERS Safety Report 16337507 (Version 1)
Quarter: 2020Q3

REPORT INFORMATION
  Report Type: Spontaneous
  Country: IT (occurrence: IT)
  Receive Date: 20190521
  Receipt Date: 20190521
  Transmission Date: 20201104
  Serious: Yes (Other)
  Sender: FDA-Public Use
  Company Number: IT-ROCHE-2321397

PATIENT
  Sex: Female

DRUGS (1)
  1. ALECTINIB. [Suspect]
     Active Substance: ALECTINIB
     Indication: PRODUCT USED FOR UNKNOWN INDICATION
     Dosage: THERAPY INTERRUPTED AND THEN RESTARTED AT THE REDUCED DOSE
     Route: 065

REACTIONS (2)
  - Neuropathy peripheral [Unknown]
  - Asthenia [Unknown]
